FAERS Safety Report 14891882 (Version 1)
Quarter: 2018Q2

REPORT INFORMATION
  Report Type: Report from Study
  Country: US (occurrence: US)
  Receive Date: 20180514
  Receipt Date: 20180514
  Transmission Date: 20180711
  Serious: Yes (Death, Hospitalization, Other)
  Sender: FDA-Public Use
  Company Number: US-JNJFOC-20180209244

PATIENT
  Age: 61 Year
  Sex: Female
  Weight: 106 kg

DRUGS (9)
  1. ZOVIRAX [Concomitant]
     Active Substance: ACYCLOVIR
     Route: 048
  2. NEXIUM [Concomitant]
     Active Substance: ESOMEPRAZOLE MAGNESIUM
     Route: 048
  3. ALBUTEROL SULFATE. [Concomitant]
     Active Substance: ALBUTEROL SULFATE
  4. ATARAX [Concomitant]
     Active Substance: HYDROXYZINE HYDROCHLORIDE
     Indication: ANXIETY
     Route: 048
  5. IMBRUVICA [Suspect]
     Active Substance: IBRUTINIB
     Indication: CHRONIC LYMPHOCYTIC LEUKAEMIA
     Route: 048
     Dates: start: 20160823, end: 20180111
  6. IMBRUVICA [Suspect]
     Active Substance: IBRUTINIB
     Indication: CHRONIC LYMPHOCYTIC LEUKAEMIA
     Route: 048
     Dates: start: 20160909
  7. AMIODARONE [Suspect]
     Active Substance: AMIODARONE
     Indication: ATRIAL FIBRILLATION
     Route: 065
  8. ZYRTEC [Concomitant]
     Active Substance: CETIRIZINE HYDROCHLORIDE
     Route: 048
  9. COZAAR [Concomitant]
     Active Substance: LOSARTAN POTASSIUM
     Route: 048

REACTIONS (18)
  - Atrial fibrillation [Recovered/Resolved]
  - Pneumonia [Unknown]
  - Dermatitis acneiform [Unknown]
  - Pyelonephritis acute [Fatal]
  - Haemangioma of skin [Unknown]
  - Rhinitis [Unknown]
  - Influenza [Fatal]
  - Mammogram abnormal [Unknown]
  - Renal failure [Unknown]
  - Nasopharyngitis [Unknown]
  - Muscle spasms [Unknown]
  - Acute kidney injury [Unknown]
  - Immunodeficiency [Unknown]
  - Deafness neurosensory [Unknown]
  - Bronchopulmonary aspergillosis [Fatal]
  - Cardiac failure [Unknown]
  - Adenoiditis [Unknown]
  - Urinary tract infection [Not Recovered/Not Resolved]

NARRATIVE: CASE EVENT DATE: 2017
